FAERS Safety Report 5211988-3 (Version None)
Quarter: 2007Q1

REPORT INFORMATION
  Report Type: 
  Country: None (occurrence: None)
  Receive Date: 20070118
  Receipt Date: 20070108
  Transmission Date: 20070707
  Serious: Yes (Hospitalization)
  Sender: FDA-Public Use
  Company Number: FR-GLAXOSMITHKLINE-B0453478A

PATIENT
  Age: 42 Year
  Sex: Male
  Weight: 80 kg

DRUGS (10)
  1. ZIAGEN [Suspect]
     Indication: HIV INFECTION
     Route: 048
     Dates: start: 20040206, end: 20050513
  2. TELZIR [Suspect]
     Indication: HIV INFECTION
     Route: 048
     Dates: start: 20050513, end: 20061220
  3. NORVIR [Suspect]
     Indication: HIV INFECTION
     Route: 048
     Dates: start: 20050513
  4. VIRAMUNE [Suspect]
     Indication: HIV INFECTION
     Route: 048
     Dates: start: 20040206, end: 20050513
  5. KALETRA [Suspect]
     Indication: HIV INFECTION
     Route: 048
     Dates: start: 20050513, end: 20051102
  6. VIREAD [Suspect]
     Indication: HIV INFECTION
     Route: 048
     Dates: start: 20040206, end: 20050513
  7. EMTRIVA [Concomitant]
     Indication: HIV INFECTION
     Route: 065
     Dates: start: 20050513, end: 20051102
  8. TRUVADA [Concomitant]
     Indication: HIV INFECTION
     Route: 065
     Dates: start: 20060125, end: 20060512
  9. VIDEX [Concomitant]
     Indication: HIV INFECTION
     Route: 065
     Dates: start: 20060725
  10. TIPRANAVIR [Concomitant]
     Indication: HIV INFECTION
     Route: 065
     Dates: start: 20060512, end: 20060625

REACTIONS (4)
  - DIARRHOEA [None]
  - HYPERCHOLESTEROLAEMIA [None]
  - HYPERTRIGLYCERIDAEMIA [None]
  - TRANSAMINASES INCREASED [None]
